FAERS Safety Report 8852363 (Version 1)
Quarter: 2012Q4

REPORT INFORMATION
  Report Type: Report from Study
  Country: JP (occurrence: JP)
  Receive Date: 20121022
  Receipt Date: 20121022
  Transmission Date: 20130627
  Serious: Yes (Hospitalization)
  Sender: FDA-Public Use
  Company Number: JP-VERTEX PHARMACEUTICAL INC.-2012-023226

PATIENT
  Age: 42 Year
  Sex: Male

DRUGS (11)
  1. VX-950 [Suspect]
     Indication: HEPATITIS C
     Dosage: 2250 mg, qd
     Route: 048
     Dates: start: 20120813
  2. RIBAVIRIN [Suspect]
     Indication: HEPATITIS C
     Dosage: 800 mg, qd
     Route: 048
     Dates: end: 20120917
  3. RIBAVIRIN [Suspect]
     Dosage: 400 mg, qd
     Route: 048
     Dates: start: 20120918
  4. PEGINTERFERON ALFA-2B [Suspect]
     Indication: HEPATITIS C
     Dosage: 1.3 ?g/kg, UNK
     Route: 058
  5. NEOMALLERMIN [Concomitant]
     Dosage: 12 mg, qd
     Route: 048
     Dates: start: 20120814, end: 20120820
  6. LOXONIN [Concomitant]
     Dosage: 60 mg, qd
     Route: 048
     Dates: start: 20120815
  7. FAMOTIDINE [Concomitant]
     Dosage: 20 mg, qd
     Route: 048
     Dates: start: 20120815
  8. EVAMYL [Concomitant]
     Dosage: 1 DF, prn
     Route: 048
     Dates: start: 20120816
  9. ALLELOCK [Concomitant]
     Dosage: 10 mg, qd
     Route: 048
     Dates: start: 20120821
  10. ATARAX                             /00058401/ [Concomitant]
     Dosage: 30 mg, qd
     Route: 048
     Dates: start: 20120821
  11. TALION                             /01587402/ [Concomitant]
     Dosage: 20 mg, qd
     Route: 048
     Dates: start: 20120814, end: 20120820

REACTIONS (2)
  - Erythema [Recovered/Resolved]
  - Pruritus [Recovered/Resolved]
